FAERS Safety Report 13244429 (Version 1)
Quarter: 2017Q1

REPORT INFORMATION
  Report Type: Spontaneous
  Country: US (occurrence: US)
  Receive Date: 20170217
  Receipt Date: 20170217
  Transmission Date: 20170428
  Serious: No
  Sender: FDA-Public Use
  Company Number: None

PATIENT
  Age: 68 Year
  Sex: Female

DRUGS (12)
  1. VITAMIN D3 [Concomitant]
     Active Substance: CHOLECALCIFEROL
  2. PROCARDIA [Concomitant]
     Active Substance: NIFEDIPINE
  3. MULTI-VITAMIN [Concomitant]
     Active Substance: .ALPHA.-TOCOPHEROL ACETATE, DL-\ASCORBIC ACID\CYANOCOBALAMIN\FLUORIDE ION\FOLIC ACID\NIACIN\PYRIDOXINE\RIBOFLAVIN\THIAMINE\VITAMIN A\VITAMIN D
  4. STOOL SOFTENER [Concomitant]
  5. MIRALAX [Concomitant]
     Active Substance: POLYETHYLENE GLYCOL 3350
  6. OCALIVA [Suspect]
     Active Substance: OBETICHOLIC ACID
     Indication: BILIARY CIRRHOSIS PRIMARY
     Dosage: 1 TABLET DAILY ORAL
     Route: 048
     Dates: start: 20170121
  7. SIMVASTATIN. [Concomitant]
     Active Substance: SIMVASTATIN
  8. NIFEDICAL XL [Concomitant]
     Active Substance: NIFEDIPINE
  9. URSODIOL. [Concomitant]
     Active Substance: URSODIOL
  10. DEXILANT [Concomitant]
     Active Substance: DEXLANSOPRAZOLE
  11. FLAX SEED [Concomitant]
     Active Substance: FLAX SEED
  12. CALCIUM [Concomitant]
     Active Substance: CALCIUM

REACTIONS (2)
  - Condition aggravated [None]
  - Pruritus [None]

NARRATIVE: CASE EVENT DATE: 201701
